FAERS Safety Report 17220454 (Version 1)
Quarter: 2019Q4

REPORT INFORMATION
  Report Type: Spontaneous
  Country: US (occurrence: US)
  Receive Date: 20191231
  Receipt Date: 20191231
  Transmission Date: 20200122
  Serious: Yes (Hospitalization)
  Sender: FDA-Public Use
  Company Number: US-TAKEDA-2019TUS073258

PATIENT
  Sex: Female

DRUGS (1)
  1. ALUNBRIG [Suspect]
     Active Substance: BRIGATINIB
     Indication: NON-SMALL CELL LUNG CANCER
     Dosage: 90 MILLIGRAM, QD
     Route: 048
     Dates: start: 20191214, end: 20191219

REACTIONS (6)
  - Ulcer [Unknown]
  - Nausea [Unknown]
  - Headache [Unknown]
  - Muscle disorder [Unknown]
  - Pain [Unknown]
  - Somnolence [Unknown]
